FAERS Safety Report 17021450 (Version 3)
Quarter: 2020Q1

REPORT INFORMATION
  Report Type: Spontaneous
  Country: US (occurrence: US)
  Receive Date: 20191112
  Receipt Date: 20200109
  Transmission Date: 20200409
  Serious: Yes (Hospitalization)
  Sender: FDA-Public Use
  Company Number: US-PFIZER INC-2019484918

PATIENT
  Age: 64 Year
  Sex: Female
  Weight: 78.91 kg

DRUGS (4)
  1. PREMARIN [Suspect]
     Active Substance: ESTROGENS, CONJUGATED
     Indication: HYSTERECTOMY
     Dosage: 0.1 MG, 2X/WEEK
     Route: 067
  2. PREMARIN [Suspect]
     Active Substance: ESTROGENS, CONJUGATED
     Dosage: 0.5 MG, 2X/WEEK
  3. LANTUS [Concomitant]
     Active Substance: INSULIN GLARGINE
     Dosage: 32 MG, 1X/DAY
  4. METFORMIN [Concomitant]
     Active Substance: METFORMIN HYDROCHLORIDE
     Indication: TYPE 2 DIABETES MELLITUS
     Dosage: 1000 MG, 3X/DAY

REACTIONS (6)
  - Breast tenderness [Unknown]
  - Body height decreased [Unknown]
  - Off label use [Unknown]
  - Genito-pelvic pain/penetration disorder [Unknown]
  - Vulvovaginal swelling [Unknown]
  - Product use in unapproved indication [Unknown]
